FAERS Safety Report 7728575-5 (Version None)
Quarter: 2011Q3

REPORT INFORMATION
  Report Type: 
  Country: None (occurrence: None)
  Receive Date: 20110831
  Receipt Date: 20110831
  Transmission Date: 20111222
  Serious: No
  Sender: FDA-Public Use
  Company Number: None

PATIENT
  Age: 58 Year
  Sex: Female
  Weight: 80.7403 kg

DRUGS (3)
  1. WELLBUTRIN [Concomitant]
  2. ZYPREXA [Concomitant]
  3. ALPRAZOLAM [Suspect]
     Indication: DRUG THERAPY
     Dosage: ONCE A DAY DAILY

REACTIONS (1)
  - PRODUCT SUBSTITUTION ISSUE [None]
